FAERS Safety Report 14530650 (Version 3)
Quarter: 2019Q2

REPORT INFORMATION
  Report Type: Spontaneous
  Country: US (occurrence: US)
  Receive Date: 20180214
  Receipt Date: 20190402
  Transmission Date: 20190711
  Serious: Yes (Hospitalization, Other)
  Sender: FDA-Public Use
  Company Number: PHEH2018US006007

PATIENT
  Sex: Female

DRUGS (3)
  1. AFINITOR [Suspect]
     Active Substance: EVEROLIMUS
     Indication: RENAL CANCER
     Dosage: 2.5 MG, QD (ONCE DAILY)
     Route: 048
  2. LENVATINIB [Suspect]
     Active Substance: LENVATINIB
     Dosage: 14 MG, QD
     Route: 048
     Dates: start: 20180420
  3. LENVATINIB [Suspect]
     Active Substance: LENVATINIB
     Indication: RENAL CANCER
     Dosage: 14 MG, QD
     Route: 048
     Dates: start: 20171104

REACTIONS (8)
  - Renal failure [Unknown]
  - Decreased appetite [Unknown]
  - Gastroenteritis [Unknown]
  - Cheilitis [Unknown]
  - Dehydration [Recovering/Resolving]
  - Oropharyngeal pain [Unknown]
  - Stomatitis [Unknown]
  - Abdominal pain upper [Unknown]
